FAERS Safety Report 5927008-9 (Version None)
Quarter: 2008Q4

REPORT INFORMATION
  Report Type: 
  Country: None (occurrence: None)
  Receive Date: 20081022
  Receipt Date: 20081009
  Transmission Date: 20090506
  Serious: Yes (Life-Threatening, Hospitalization)
  Sender: FDA-Public Use
  Company Number: FR-GENENTECH-269604

PATIENT
  Sex: Female
  Weight: 80 kg

DRUGS (2)
  1. XOLAIR [Suspect]
     Indication: BRONCHOPULMONARY ASPERGILLOSIS ALLERGIC
     Dosage: 375 MG, 2/WEEK
  2. BROMAZEPAM [Suspect]
     Indication: DRUG USE FOR UNKNOWN INDICATION

REACTIONS (1)
  - SUICIDE ATTEMPT [None]
